FAERS Safety Report 25043554 (Version 2)
Quarter: 2025Q3

REPORT INFORMATION
  Report Type: Spontaneous
  Country: CN (occurrence: CN)
  Receive Date: 20250306
  Receipt Date: 20250710
  Transmission Date: 20251020
  Serious: Yes (Other)
  Sender: BEIGENE
  Company Number: CN-BEIGENE-BGN-2025-003263

PATIENT
  Age: 68 Year

DRUGS (8)
  1. TISLELIZUMAB [Suspect]
     Active Substance: TISLELIZUMAB
     Indication: Squamous cell carcinoma of lung
     Dosage: 200 MILLIGRAM,D1, Q3WK
  2. TISLELIZUMAB [Suspect]
     Active Substance: TISLELIZUMAB
     Dosage: 200 MILLIGRAM,D1, Q3WK
  3. PACLITAXEL [Concomitant]
     Active Substance: PACLITAXEL
     Indication: Squamous cell carcinoma of lung
     Dosage: 400 MILLIGRAM, D1, Q3WK
  4. PACLITAXEL [Concomitant]
     Active Substance: PACLITAXEL
     Dosage: 400 MILLIGRAM, D1, Q3WK
  5. CARBOPLATIN [Concomitant]
     Active Substance: CARBOPLATIN
     Indication: Squamous cell carcinoma of lung
     Dosage: 400 MILLIGRAM, D1, Q3WK
  6. CARBOPLATIN [Concomitant]
     Active Substance: CARBOPLATIN
     Dosage: 400 MILLIGRAM, D1, Q3WK
  7. ATORVASTATIN CALCIUM [Concomitant]
     Active Substance: ATORVASTATIN CALCIUM
     Indication: Cerebral infarction
  8. ASPIRIN [Concomitant]
     Active Substance: ASPIRIN
     Indication: Cerebral infarction

REACTIONS (1)
  - Multiple organ dysfunction syndrome [Recovered/Resolved]
